FAERS Safety Report 24868898 (Version 1)
Quarter: 2025Q1

REPORT INFORMATION
  Report Type: Spontaneous
  Country: LT (occurrence: LT)
  Receive Date: 20250121
  Receipt Date: 20250121
  Transmission Date: 20250408
  Serious: Yes (Hospitalization, Other)
  Sender: TEVA
  Company Number: None

PATIENT
  Age: 17 Year
  Sex: Male
  Weight: 43.7 kg

DRUGS (7)
  1. ALLOPURINOL [Suspect]
     Active Substance: ALLOPURINOL
     Indication: Hyperuricaemia
     Dosage: ALLOPURINOL RATIOPHARM
     Route: 048
     Dates: start: 20220511, end: 20241219
  2. OMNITROPE [Concomitant]
     Active Substance: SOMATROPIN
     Indication: Body height abnormal
     Dosage: 10 MG/1.5 ML
     Route: 058
     Dates: start: 20230719
  3. MEDROL [Concomitant]
     Active Substance: METHYLPREDNISOLONE
     Indication: Immunosuppression
     Route: 048
     Dates: start: 20211126
  4. ENALAPRIL MALEATE [Concomitant]
     Active Substance: ENALAPRIL MALEATE
     Indication: Secondary hypertension
     Route: 048
     Dates: start: 20241128
  5. CELLCEPT [Concomitant]
     Active Substance: MYCOPHENOLATE MOFETIL
     Indication: Immunosuppression
     Dosage: (500 MG IN THE MORNING AND 1000 MG IN THE EVENING)
     Route: 048
     Dates: start: 20211126
  6. Sustanon [Concomitant]
     Indication: Pubertal disorder
     Route: 030
     Dates: start: 20240917
  7. Alfacalcidol Zentiva [Concomitant]
     Indication: Chronic kidney disease
     Route: 048
     Dates: start: 20201217

REACTIONS (1)
  - Tubulointerstitial nephritis [Not Recovered/Not Resolved]

NARRATIVE: CASE EVENT DATE: 20241101
